FAERS Safety Report 25733570 (Version 2)
Quarter: 2025Q3

REPORT INFORMATION
  Report Type: Spontaneous
  Country: JP (occurrence: JP)
  Receive Date: 20250828
  Receipt Date: 20250904
  Transmission Date: 20251020
  Serious: Yes (Hospitalization, Other)
  Sender: EMD SERONO INC
  Company Number: JP-Merck Healthcare KGaA-2025042922

PATIENT
  Age: 73 Year
  Sex: Male

DRUGS (6)
  1. METGLUCO [Suspect]
     Active Substance: METFORMIN HYDROCHLORIDE
     Indication: Type 2 diabetes mellitus
  2. GLICLAZIDE [Suspect]
     Active Substance: GLICLAZIDE
     Indication: Product used for unknown indication
  3. GLICLAZIDE [Suspect]
     Active Substance: GLICLAZIDE
  4. PIOGLITAZONE [Concomitant]
     Active Substance: PIOGLITAZONE
     Indication: Product used for unknown indication
  5. PIOGLITAZONE [Concomitant]
     Active Substance: PIOGLITAZONE
  6. TRULICITY [Concomitant]
     Active Substance: DULAGLUTIDE
     Indication: Product used for unknown indication

REACTIONS (6)
  - Fracture [Recovered/Resolved]
  - Cataract [Recovered/Resolved]
  - Percutaneous coronary intervention [Unknown]
  - Glycosylated haemoglobin increased [Unknown]
  - Hypersensitivity [Unknown]
  - Treatment noncompliance [Unknown]

NARRATIVE: CASE EVENT DATE: 20210101
